FAERS Safety Report 26020784 (Version 1)
Quarter: 2025Q4

REPORT INFORMATION
  Report Type: Report from Study
  Country: GB (occurrence: GB)
  Receive Date: 20251110
  Receipt Date: 20251110
  Transmission Date: 20260119
  Serious: Yes (Other)
  Sender: CELLTRION
  Company Number: GB-CELLTRION INC.-2025GB039876

PATIENT

DRUGS (2)
  1. ADALIMUMAB-AATY [Suspect]
     Active Substance: ADALIMUMAB-AATY
     Indication: Rheumatoid arthritis
     Dosage: 40 MG, EVERY TWO WEEKS
     Route: 058
     Dates: start: 202508, end: 202510
  2. ADALIMUMAB-AATY [Suspect]
     Active Substance: ADALIMUMAB-AATY
     Dosage: LAST INJECTED 15/09

REACTIONS (6)
  - Syncope [Unknown]
  - Dizziness [Unknown]
  - Myalgia [Unknown]
  - Asthenia [Unknown]
  - Dyspnoea [Unknown]
  - Hypertension [Unknown]
